FAERS Safety Report 9690346 (Version 1)
Quarter: 2013Q4

REPORT INFORMATION
  Report Type: Report from Study
  Country: FR (occurrence: FR)
  Receive Date: 20131115
  Receipt Date: 20131115
  Transmission Date: 20140711
  Serious: Yes (Hospitalization)
  Sender: FDA-Public Use
  Company Number: FR-ASTELLAS-2013EU009931

PATIENT
  Age: 58 Year
  Sex: Male

DRUGS (4)
  1. ADVAGRAF [Suspect]
     Indication: PROPHYLAXIS AGAINST TRANSPLANT REJECTION
     Dosage: 2.5 MG, UID/QD
     Route: 048
     Dates: start: 20130131
  2. ALLOPURINOL [Concomitant]
     Indication: GOUT
     Dosage: UNK
     Route: 065
     Dates: start: 20121204
  3. LERCAN [Concomitant]
     Indication: HYPERTENSION
     Dosage: UNK
     Route: 065
     Dates: start: 20121217
  4. NOVONORM [Concomitant]
     Indication: DIABETES MELLITUS
     Dosage: UNK
     Route: 065
     Dates: start: 20130325

REACTIONS (2)
  - Prostatic obstruction [Recovered/Resolved]
  - Prostatic adenoma [Recovered/Resolved]
